FAERS Safety Report 7596103-3 (Version None)
Quarter: 2011Q3

REPORT INFORMATION
  Report Type: 
  Country: None (occurrence: None)
  Receive Date: 20110707
  Receipt Date: 20110701
  Transmission Date: 20111222
  Serious: Yes (Other)
  Sender: FDA-Public Use
  Company Number: US-PFIZER INC-2011147717

PATIENT
  Sex: Female

DRUGS (6)
  1. LYRICA [Suspect]
     Dosage: 150 MG UNK
     Route: 048
  2. LYRICA [Suspect]
     Dosage: 450 MG UNK
     Route: 048
  3. LYRICA [Suspect]
     Dosage: 75 MG UNK
     Route: 048
  4. NEURONTIN [Suspect]
     Dosage: UNK
  5. LYRICA [Suspect]
     Dosage: 600 MG UNK
     Route: 048
  6. LYRICA [Suspect]
     Indication: NEUROPATHY PERIPHERAL
     Dosage: 75 MG, UNK
     Route: 048

REACTIONS (3)
  - WEIGHT INCREASED [None]
  - DIARRHOEA [None]
  - WEIGHT DECREASED [None]
